FAERS Safety Report 8202460-7 (Version None)
Quarter: 2012Q1

REPORT INFORMATION
  Report Type: 
  Country: None (occurrence: None)
  Receive Date: 20120312
  Receipt Date: 20120305
  Transmission Date: 20120608
  Serious: Yes (Other)
  Sender: FDA-Public Use
  Company Number: US-ABBOTT-12P-163-0907706-00

PATIENT
  Sex: Female

DRUGS (3)
  1. CLOZARIL [Suspect]
     Indication: BIPOLAR DISORDER
     Dates: start: 20110101
  2. CLOZARIL [Suspect]
     Indication: AFFECTIVE DISORDER
     Dates: end: 20110101
  3. DEPAKOTE ER [Suspect]
     Indication: BIPOLAR DISORDER
     Dates: end: 20110101

REACTIONS (1)
  - PANCYTOPENIA [None]
